FAERS Safety Report 13160289 (Version 1)
Quarter: 2017Q1

REPORT INFORMATION
  Report Type: Spontaneous
  Country: US (occurrence: US)
  Receive Date: 20170127
  Receipt Date: 20170127
  Transmission Date: 20170428
  Serious: No
  Sender: FDA-Public Use
  Company Number: US-009507513-1701USA008799

PATIENT
  Age: 42 Year
  Sex: Female
  Weight: 86.17 kg

DRUGS (3)
  1. SYNTHROID [Concomitant]
     Active Substance: LEVOTHYROXINE SODIUM
  2. NUVARING [Suspect]
     Active Substance: ETHINYL ESTRADIOL\ETONOGESTREL
     Indication: LIBIDO DISORDER
  3. NUVARING [Suspect]
     Active Substance: ETHINYL ESTRADIOL\ETONOGESTREL
     Indication: CONTRACEPTION
     Dosage: 1 DF, Q3W
     Route: 067
     Dates: start: 2008

REACTIONS (3)
  - Loss of libido [Unknown]
  - Abnormal weight gain [Unknown]
  - Product use issue [Unknown]
